FAERS Safety Report 16022193 (Version 1)
Quarter: 2019Q1

REPORT INFORMATION
  Report Type: Spontaneous
  Country: US (occurrence: US)
  Receive Date: 20190301
  Receipt Date: 20190301
  Transmission Date: 20190418
  Serious: No
  Sender: FDA-Public Use
  Company Number: US-DSJP-DSU-2019-106429

PATIENT

DRUGS (4)
  1. MORPHABOND ER [Suspect]
     Active Substance: MORPHINE SULFATE
     Dosage: 30 MG, QD
     Route: 048
     Dates: start: 201902, end: 20190211
  2. MORPHABOND ER [Suspect]
     Active Substance: MORPHINE SULFATE
     Indication: PAIN
     Dosage: 30 MG, BID
     Route: 048
     Dates: start: 201901, end: 201902
  3. OXYCONTIN [Concomitant]
     Active Substance: OXYCODONE HYDROCHLORIDE
     Indication: PAIN
     Dosage: 40 MG
     Route: 048
     Dates: end: 201901
  4. UNKNOWN VITAMINS [Concomitant]
     Indication: SUPPLEMENTATION THERAPY
     Route: 065

REACTIONS (4)
  - Asthenia [Recovered/Resolved]
  - Eyelid oedema [Recovered/Resolved]
  - Dizziness [Recovered/Resolved]
  - Fatigue [Recovered/Resolved]

NARRATIVE: CASE EVENT DATE: 201901
